FAERS Safety Report 6834868-6 (Version None)
Quarter: 2010Q3

REPORT INFORMATION
  Report Type: 
  Country: None (occurrence: None)
  Receive Date: 20100712
  Receipt Date: 20070621
  Transmission Date: 20110219
  Serious: No
  Sender: FDA-Public Use
  Company Number: US-PFIZER INC-2007030542

PATIENT
  Sex: Female

DRUGS (5)
  1. CHANTIX [Suspect]
     Indication: SMOKING CESSATION THERAPY
     Route: 048
     Dates: start: 20070406
  2. RESTORIL [Concomitant]
     Route: 048
  3. XANAX [Concomitant]
     Route: 048
  4. METHADONE HCL [Concomitant]
     Route: 048
  5. ESTROGENS [Concomitant]
     Route: 062

REACTIONS (5)
  - AGITATION [None]
  - BLOOD GLUCOSE DECREASED [None]
  - INSOMNIA [None]
  - NAUSEA [None]
  - TREMOR [None]
